FAERS Safety Report 4806444-8 (Version None)
Quarter: 2005Q4

REPORT INFORMATION
  Report Type: 
  Country: None (occurrence: None)
  Receive Date: 20051021
  Receipt Date: 20051012
  Transmission Date: 20060501
  Serious: Yes (Other)
  Sender: FDA-Public Use
  Company Number: PHBS2005JP15179

PATIENT
  Age: 66 Year
  Sex: Male

DRUGS (4)
  1. VOLTAREN [Suspect]
     Dosage: 75 MG/DAY
     Route: 048
     Dates: start: 20051007, end: 20051007
  2. SELBEX [Concomitant]
     Route: 048
     Dates: start: 20051007, end: 20051007
  3. RINDERON [Concomitant]
     Route: 042
  4. CARBOCAIN [Concomitant]
     Route: 042

REACTIONS (4)
  - COLD SWEAT [None]
  - DIARRHOEA [None]
  - HYPOAESTHESIA [None]
  - LOSS OF CONSCIOUSNESS [None]
